FAERS Safety Report 23483371 (Version 1)
Quarter: 2024Q1

REPORT INFORMATION
  Report Type: Spontaneous
  Country: JP (occurrence: JP)
  Receive Date: 20240202
  Receipt Date: 20240202
  Transmission Date: 20240410
  Serious: Yes (Hospitalization)
  Sender: FDA-Public Use
  Company Number: JP-BRISTOL-MYERS SQUIBB COMPANY-2023-171033

PATIENT
  Age: 7 Decade
  Sex: Male

DRUGS (3)
  1. YERVOY [Suspect]
     Active Substance: IPILIMUMAB
     Indication: Malignant melanoma
     Dosage: TOTAL NUMBER OF DOSES: 3 TIMES
     Dates: start: 202305, end: 202307
  2. OPDIVO [Suspect]
     Active Substance: NIVOLUMAB
     Indication: Malignant melanoma
     Dosage: TOTAL NUMBER OF DOSES: 26 TIMES
     Route: 041
     Dates: start: 202203, end: 202303
  3. OPDIVO [Suspect]
     Active Substance: NIVOLUMAB
     Dosage: TOTAL NUMBER OF DOSES: 3 TIMES
     Route: 041
     Dates: start: 202305, end: 202307

REACTIONS (1)
  - Gastroenteritis [Recovered/Resolved]

NARRATIVE: CASE EVENT DATE: 20230701
